FAERS Safety Report 15455696 (Version 1)
Quarter: 2018Q4

REPORT INFORMATION
  Report Type: Report from Study
  Country: US (occurrence: US)
  Receive Date: 20181002
  Receipt Date: 20181002
  Transmission Date: 20190204
  Serious: Yes (Other)
  Sender: FDA-Public Use
  Company Number: US-JNJFOC-20180702175

PATIENT
  Age: 78 Year
  Sex: Female

DRUGS (2)
  1. IMBRUVICA [Suspect]
     Active Substance: IBRUTINIB
     Indication: NATURAL KILLER-CELL LYMPHOBLASTIC LYMPHOMA
     Route: 048
     Dates: start: 20180703, end: 2018
  2. IMBRUVICA [Suspect]
     Active Substance: IBRUTINIB
     Indication: NATURAL KILLER-CELL LYMPHOBLASTIC LYMPHOMA
     Route: 048
     Dates: start: 20180604

REACTIONS (8)
  - Platelet count abnormal [Unknown]
  - Red blood cell count abnormal [Unknown]
  - Vaginal haemorrhage [Recovered/Resolved]
  - Off label use [Unknown]
  - Infection [Unknown]
  - Product use in unapproved indication [Unknown]
  - Nasopharyngitis [Unknown]
  - Malaise [Unknown]

NARRATIVE: CASE EVENT DATE: 20180604
